FAERS Safety Report 4376733-2 (Version None)
Quarter: 2004Q2

REPORT INFORMATION
  Report Type: 
  Country: None (occurrence: None)
  Receive Date: 20040609
  Receipt Date: 20040405
  Transmission Date: 20050107
  Serious: Yes (Hospitalization)
  Sender: FDA-Public Use
  Company Number: 2004208131US

PATIENT
  Age: 83 Year
  Sex: Female

DRUGS (7)
  1. BEXTRA [Suspect]
     Indication: OSTEOARTHRITIS
     Dosage: 10 MG, QD
     Dates: start: 20040327, end: 20040331
  2. SOTALOL HCL [Concomitant]
  3. THYROID TAB [Concomitant]
  4. OLMESARTAN [Concomitant]
  5. FUROSEMIDE [Concomitant]
  6. MULTIVITAMIN [Concomitant]
  7. RABEPRAZOLE SODIUM [Concomitant]

REACTIONS (2)
  - FLUID RETENTION [None]
  - MUSCULOSKELETAL DISCOMFORT [None]
